FAERS Safety Report 18666025 (Version 3)
Quarter: 2021Q1

REPORT INFORMATION
  Report Type: Spontaneous
  Country: AT (occurrence: AT)
  Receive Date: 20201226
  Receipt Date: 20210312
  Transmission Date: 20210419
  Serious: Yes (Other)
  Sender: FDA-Public Use
  Company Number: AT-AMGEN-AUTNI2019097207

PATIENT
  Age: 51 Year
  Sex: Female
  Weight: 72 kg

DRUGS (22)
  1. TRASTUZUMAB. [Suspect]
     Active Substance: TRASTUZUMAB
     Indication: BREAST CANCER
  2. CYCLOPHOSPHAMIDE. [Suspect]
     Active Substance: CYCLOPHOSPHAMIDE
     Indication: HER2 POSITIVE BREAST CANCER
     Dosage: 500 MILLIGRAM/SQ. METER, Q3WK
     Route: 042
     Dates: start: 20180529, end: 20180710
  3. ELLENCE [Suspect]
     Active Substance: EPIRUBICIN HYDROCHLORIDE
     Indication: HER2 POSITIVE BREAST CANCER
     Dosage: 100 MILLIGRAM/SQ. METER, Q3WK
     Route: 042
     Dates: start: 20180529
  4. NEULASTA [Suspect]
     Active Substance: PEGFILGRASTIM
     Indication: PRODUCT USED FOR UNKNOWN INDICATION
     Dosage: UNK
     Route: 065
     Dates: start: 20170711
  5. FLUOROPLEX [Suspect]
     Active Substance: FLUOROURACIL
     Indication: HER2 POSITIVE BREAST CANCER
     Dosage: 500 MILLIGRAM/SQ. METER, Q3WK
     Route: 042
     Dates: start: 20180529
  6. EMEND [Concomitant]
     Active Substance: APREPITANT
     Dosage: UNK
     Route: 065
     Dates: start: 20170711
  7. TRASTUZUMAB. [Suspect]
     Active Substance: TRASTUZUMAB
     Indication: HER2 POSITIVE BREAST CANCER
     Dosage: 6 MILLIGRAM/KILOGRAM, Q3WK
     Route: 042
     Dates: start: 20170912, end: 20200121
  8. CARBOPLATIN. [Suspect]
     Active Substance: CARBOPLATIN
     Indication: HER2 POSITIVE BREAST CANCER
     Dosage: 528 MILLIGRAM, Q3WK
     Route: 042
     Dates: start: 20170912, end: 20171023
  9. CYCLOPHOSPHAMIDE. [Suspect]
     Active Substance: CYCLOPHOSPHAMIDE
     Indication: BREAST CANCER
  10. EFUDEX [Suspect]
     Active Substance: FLUOROURACIL
     Indication: HER2 POSITIVE BREAST CANCER
     Dosage: 500 MICROGRAM/SQ. METER, Q3WK
     Route: 042
     Dates: start: 20180529
  11. PERTUZUMAB. [Suspect]
     Active Substance: PERTUZUMAB
     Indication: HER2 POSITIVE BREAST CANCER
     Dosage: 420 MILLIGRAM, Q3WK
     Route: 042
     Dates: start: 20170912, end: 20180529
  12. FLUOROURACIL. [Suspect]
     Active Substance: FLUOROURACIL
     Indication: HER2 POSITIVE BREAST CANCER
     Dosage: 500 MILLIGRAM/SQ. METER, Q3WK
     Route: 042
     Dates: start: 20180529, end: 20180710
  13. TAXOTERE [Suspect]
     Active Substance: DOCETAXEL
     Indication: HER2 POSITIVE BREAST CANCER
     Dosage: 109 MILLIGRAM, Q3WK
     Route: 042
     Dates: start: 20170912
  14. ZOFRAN [Concomitant]
     Active Substance: ONDANSETRON HYDROCHLORIDE
     Dosage: UNK
     Route: 065
     Dates: start: 20170611
  15. CYTOXAN [Suspect]
     Active Substance: CYCLOPHOSPHAMIDE
     Indication: HER2 POSITIVE BREAST CANCER
     Dosage: 500 MILLIGRAM/SQ. METER, Q3WK
     Route: 042
     Dates: start: 20180529
  16. DOCETAXEL. [Suspect]
     Active Substance: DOCETAXEL
     Indication: HER2 POSITIVE BREAST CANCER
     Dosage: 109 MILLIGRAM, Q3WK
     Route: 042
     Dates: start: 20170912, end: 20171023
  17. PARAPLATIN [Suspect]
     Active Substance: CARBOPLATIN
     Indication: HER2 POSITIVE BREAST CANCER
     Dosage: 528 UNK
     Route: 042
     Dates: start: 20170912
  18. ADRUCIL [Suspect]
     Active Substance: FLUOROURACIL
     Indication: HER2 POSITIVE BREAST CANCER
     Dosage: 500 MILLIGRAM, Q3WK
     Route: 042
     Dates: start: 20180529
  19. DOLOPHINE [Concomitant]
     Active Substance: METHADONE HYDROCHLORIDE
     Dosage: UNK
     Route: 065
  20. ARANESP [Suspect]
     Active Substance: DARBEPOETIN ALFA
     Indication: PRODUCT USED FOR UNKNOWN INDICATION
     Dosage: UNK
     Route: 065
     Dates: start: 20170711
  21. EPIRUBICIN [Suspect]
     Active Substance: EPIRUBICIN
     Indication: HER2 POSITIVE BREAST CANCER
     Dosage: 100 MILLIGRAM/SQ. METER, Q3WK
     Route: 042
     Dates: start: 20180529, end: 20180710
  22. FORTECORTIN [DEXAMETHASONE] [Concomitant]
     Active Substance: DEXAMETHASONE
     Dosage: UNK
     Route: 065
     Dates: start: 20170711

REACTIONS (7)
  - Neuropathy peripheral [Unknown]
  - Rhinitis [Recovered/Resolved]
  - Off label use [Unknown]
  - Herpes zoster [Recovered/Resolved]
  - Respiratory tract infection [Recovered/Resolved]
  - Breast pain [Recovered/Resolved]
  - Thrombocytopenia [Recovered/Resolved]

NARRATIVE: CASE EVENT DATE: 20180605
